FAERS Safety Report 17019949 (Version 1)
Quarter: 2019Q4

REPORT INFORMATION
  Report Type: Spontaneous
  Country: JP (occurrence: JP)
  Receive Date: 20191112
  Receipt Date: 20191112
  Transmission Date: 20200122
  Serious: Yes (Hospitalization, Other)
  Sender: FDA-Public Use
  Company Number: NVSJ2019JP000503

PATIENT
  Sex: Male

DRUGS (2)
  1. TIGASON [ETRETINATE] [Suspect]
     Active Substance: ETRETINATE
     Indication: PSORIASIS
     Dosage: UNK
     Route: 048
  2. ILARIS [Suspect]
     Active Substance: CANAKINUMAB
     Indication: CRYOPYRIN ASSOCIATED PERIODIC SYNDROME
     Dosage: 300 MG
     Route: 058
     Dates: start: 201505

REACTIONS (5)
  - Renal impairment [Unknown]
  - Psoriasis [Recovered/Resolved]
  - Concomitant disease aggravated [Recovered/Resolved]
  - Hyperkeratosis [Unknown]
  - Soft tissue infection [Recovered/Resolved]

NARRATIVE: CASE EVENT DATE: 201808
